FAERS Safety Report 5876163-8 (Version None)
Quarter: 2008Q3

REPORT INFORMATION
  Report Type: 
  Country: None (occurrence: None)
  Receive Date: 20080910
  Receipt Date: 20080908
  Transmission Date: 20090109
  Serious: Yes (Death, Hospitalization, Disabling, Other)
  Sender: FDA-Public Use
  Company Number: US-BAYER-200812639NA

PATIENT
  Age: 56 Year
  Sex: Female
  Weight: 99 kg

DRUGS (21)
  1. SORAFENIB [Suspect]
     Indication: BREAST CANCER METASTATIC
     Dosage: TOTAL DAILY DOSE: 800 MG  UNIT DOSE: 200 MG
     Route: 048
     Dates: start: 20070928, end: 20071108
  2. SORAFENIB [Suspect]
     Dosage: TOTAL DAILY DOSE: 400 MG  UNIT DOSE: 200 MG
     Route: 048
     Dates: start: 20071109, end: 20080408
  3. ABRAXANE [Suspect]
     Indication: BREAST CANCER METASTATIC
     Dosage: AS USED: 264 MG
     Route: 042
     Dates: start: 20070928, end: 20071012
  4. ABRAXANE [Suspect]
     Dosage: AS USED: 159 MG
     Route: 042
     Dates: start: 20080124, end: 20080404
  5. ABRAXANE [Suspect]
     Dosage: AS USED: 211 MG
     Route: 042
     Dates: start: 20071102, end: 20080104
  6. ZOMETA [Concomitant]
     Indication: METASTASES TO BONE
     Dosage: AS USED: 4 MG
     Route: 042
     Dates: start: 20070928
  7. ALTACE [Concomitant]
     Indication: HYPERTENSION
     Dosage: TOTAL DAILY DOSE: 10 MG
     Route: 048
     Dates: start: 19870101
  8. LORTAB [Concomitant]
     Indication: ARTHRALGIA
     Route: 048
     Dates: start: 20070812
  9. COMPAZINE [Concomitant]
     Indication: NAUSEA
     Route: 048
     Dates: start: 20070920
  10. DULCOLAX [Concomitant]
     Indication: CONSTIPATION
     Route: 048
     Dates: start: 20070913
  11. ARANESP [Concomitant]
     Indication: ANAEMIA
     Dosage: TOTAL DAILY DOSE: 300 ?G
     Route: 058
     Dates: start: 20071130
  12. OXYGEN [Concomitant]
     Indication: DYSPNOEA
     Dates: start: 20071107
  13. RAMIPRIL [Concomitant]
     Dosage: TOTAL DAILY DOSE: 10 MG
     Route: 048
  14. MIRALAX [Concomitant]
     Indication: CONSTIPATION
     Route: 048
     Dates: start: 20080124, end: 20080418
  15. LOTRIMIN [Concomitant]
     Indication: ERYTHEMA
     Route: 061
     Dates: start: 20080311, end: 20080418
  16. MICONAZOLE [Concomitant]
     Indication: ERYTHEMA
     Route: 061
     Dates: start: 20080311, end: 20080418
  17. DEXAMETHASONE [Concomitant]
     Indication: ERYTHEMA
     Route: 048
     Dates: start: 20080416
  18. ATIVAN [Concomitant]
     Indication: NAUSEA
     Route: 048
     Dates: start: 20080417
  19. MIDOL IB [Concomitant]
     Indication: HEADACHE
  20. RED BLOOD CELLS [Concomitant]
     Indication: ANAEMIA
     Route: 042
     Dates: start: 20080407, end: 20080407
  21. MORPHINE [Concomitant]

REACTIONS (4)
  - BREAST CANCER METASTATIC [None]
  - CONFUSIONAL STATE [None]
  - METASTASES TO MENINGES [None]
  - SUBCUTANEOUS ABSCESS [None]
